FAERS Safety Report 7810389-9 (Version None)
Quarter: 2011Q4

REPORT INFORMATION
  Report Type: 
  Country: None (occurrence: None)
  Receive Date: 20111012
  Receipt Date: 20111011
  Transmission Date: 20120403
  Serious: Yes (Hospitalization, Other)
  Sender: FDA-Public Use
  Company Number: GB-ABBOTT-11P-167-0862781-00

PATIENT
  Age: 5 Year
  Sex: Female

DRUGS (2)
  1. ACETAMINOPHEN [Concomitant]
     Indication: PRODUCT USED FOR UNKNOWN INDICATION
  2. ERYTHROMYCIN [Suspect]
     Indication: TONSILLITIS
     Route: 048
     Dates: start: 20110922, end: 20110923

REACTIONS (5)
  - ABDOMINAL TENDERNESS [None]
  - PALLOR [None]
  - VOMITING [None]
  - PANCREATITIS ACUTE [None]
  - ABDOMINAL RIGIDITY [None]
